FAERS Safety Report 16660685 (Version 1)
Quarter: 2019Q3

REPORT INFORMATION
  Report Type: Spontaneous
  Country: US (occurrence: US)
  Receive Date: 20190619
  Receipt Date: 20190619
  Transmission Date: 20191004
  Serious: No
  Sender: FDA-Public Use
  Company Number: None

PATIENT
  Sex: Female

DRUGS (1)
  1. AJOVY [Suspect]
     Active Substance: FREMANEZUMAB-VFRM
     Indication: MIGRAINE
     Dosage: 225 MG EVERY 28 DAYS SUBCUTANEOUSLY
     Route: 058
     Dates: start: 20190415

REACTIONS (2)
  - Limb discomfort [None]
  - Fatigue [None]
